FAERS Safety Report 9044899 (Version 1)
Quarter: 2013Q1

REPORT INFORMATION
  Report Type: Report from Study
  Country: JP (occurrence: JP)
  Receive Date: 20130130
  Receipt Date: 20130130
  Transmission Date: 20140127
  Serious: Yes (Other)
  Sender: FDA-Public Use
  Company Number: JP-GLAXOSMITHKLINE-B0859975A

PATIENT
  Age: 52 None
  Sex: Female
  Weight: 32 kg

DRUGS (10)
  1. REVOLADE [Suspect]
     Indication: IDIOPATHIC THROMBOCYTOPENIC PURPURA
     Route: 048
     Dates: start: 20110131, end: 20110217
  2. FUNGIZONE [Concomitant]
     Route: 048
  3. PARIET [Concomitant]
     Route: 048
  4. GASMOTIN [Concomitant]
     Route: 048
  5. ARTIST [Concomitant]
     Route: 048
  6. ALFAROL [Concomitant]
     Route: 048
  7. BAKTAR [Concomitant]
     Route: 048
  8. PURSENNID [Concomitant]
     Route: 048
  9. PREDNISOLONE [Concomitant]
     Route: 048
  10. FOSRENOL [Concomitant]
     Route: 048

REACTIONS (1)
  - Shunt occlusion [Recovering/Resolving]
